FAERS Safety Report 12268420 (Version 1)
Quarter: 2016Q2

REPORT INFORMATION
  Report Type: Report from Study
  Country: US (occurrence: US)
  Receive Date: 20160414
  Receipt Date: 20160414
  Transmission Date: 20160815
  Serious: Yes (Other)
  Sender: FDA-Public Use
  Company Number: US-GILEAD-2016-0207268

PATIENT
  Age: 71 Year
  Sex: Female

DRUGS (2)
  1. PROLIA [Concomitant]
     Active Substance: DENOSUMAB
     Dosage: ONE SHOT
     Route: 065
     Dates: start: 201503, end: 201503
  2. LEDIPASVIR/SOFOSBUVIR [Suspect]
     Active Substance: LEDIPASVIR\SOFOSBUVIR
     Indication: HEPATITIS C
     Dosage: 1 DF, QD
     Route: 048
     Dates: start: 201505, end: 201508

REACTIONS (4)
  - Toothache [Unknown]
  - Osteonecrosis of jaw [Unknown]
  - Feeding disorder [Unknown]
  - Weight decreased [Unknown]
